FAERS Safety Report 9252898 (Version 1)
Quarter: 2013Q1

REPORT INFORMATION
  Report Type: Spontaneous
  Country: US (occurrence: None)
  Receive Date: 20130305
  Receipt Date: 20130305
  Transmission Date: 20140127
  Serious: Yes (Other)
  Sender: FDA-Public Use
  Company Number: 163-21880-12042387

PATIENT
  Age: 85 Year
  Sex: Female
  Weight: 78.02 kg

DRUGS (17)
  1. REVLIMID [Suspect]
     Indication: PLASMA CELL MYELOMA
     Route: 048
     Dates: start: 20120220
  2. CLARITIN (LORATADINE) [Concomitant]
  3. COZAAR (LOSARTAN POTASSIUM) [Concomitant]
  4. DECADRON (DEXAMETH [Concomitant]
  5. PLAVIX(CLOPIDOGREL SULFATE) [Concomitant]
  6. SIMVASTATIN(SIMVASTATIN) [Concomitant]
  7. ZOMETA(ZOLEDRONIC ACID) [Concomitant]
  8. ALPHA LIPOIC ACID(THIOCTIC ACID) [Concomitant]
  9. CALCIUM(CALCIUM) [Concomitant]
  10. IMMUNE HEALTH(IMMUNE HEALTH) [Concomitant]
  11. L CARNITINE(LEVOCARNITINE HYDROCHLORIDE) [Concomitant]
  12. POTASSIUM(POTASSIUM) [Concomitant]
  13. PROBIOTIC(BIFIDOBACTERIUM LACTIS) [Concomitant]
  14. VITAMIN D(ERGOCALCIFEROL) [Concomitant]
  15. LORATADINE(LORATADINE) [Concomitant]
  16. OMEPRAZOLE(OMEPRAZOLE) [Concomitant]
  17. CALCIUM PLUS VITAMIN D(CALCIUM D3 ^STADA^) [Concomitant]

REACTIONS (7)
  - Insomnia [None]
  - Tooth disorder [None]
  - Neuropathy peripheral [None]
  - Blood potassium decreased [None]
  - Dyspnoea [None]
  - Diarrhoea [None]
  - Pain in extremity [None]
